FAERS Safety Report 4404455-8 (Version None)
Quarter: 2004Q3

REPORT INFORMATION
  Report Type: 
  Country: None (occurrence: None)
  Receive Date: 20040720
  Receipt Date: 20040706
  Transmission Date: 20050211
  Serious: Yes (Hospitalization)
  Sender: FDA-Public Use
  Company Number: 2004IM000692

PATIENT
  Age: 42 Year
  Sex: Female

DRUGS (4)
  1. ADVAFERON (A463_INTERFERON ALFACON-1) [Suspect]
     Indication: HEPATITIS C
     Dosage: 12 MU;QD;SUBCUTANEOUS
     Route: 058
     Dates: start: 20040421, end: 20040621
  2. RIBAVIRIN [Suspect]
     Indication: HEPATITIS C
     Dosage: 600 MG;QD;SUBCUTANEOUS
     Route: 058
     Dates: start: 20040421, end: 20040621
  3. INDOMETHACIN [Concomitant]
  4. REBAMIPIDE [Concomitant]

REACTIONS (6)
  - AFFECT LABILITY [None]
  - ANOREXIA [None]
  - ANXIETY [None]
  - DEPRESSION [None]
  - INSOMNIA [None]
  - MALAISE [None]
